FAERS Safety Report 13868193 (Version 3)
Quarter: 2017Q4

REPORT INFORMATION
  Report Type: Spontaneous
  Country: US (occurrence: US)
  Receive Date: 20170814
  Receipt Date: 20171010
  Transmission Date: 20180320
  Serious: No
  Sender: FDA-Public Use
  Company Number: US-JNJFOC-20170805570

PATIENT
  Age: 79 Year
  Sex: Male
  Weight: 86.18 kg

DRUGS (3)
  1. TYLENOL EXTRA STRENGTH [Suspect]
     Active Substance: ACETAMINOPHEN
     Indication: TRIGEMINAL NEURALGIA
     Route: 048
     Dates: start: 20170801, end: 20170801
  2. PLAVIX [Concomitant]
     Active Substance: CLOPIDOGREL BISULFATE
     Indication: CARDIAC DISORDER
     Route: 065
  3. PRADAXA [Concomitant]
     Active Substance: DABIGATRAN ETEXILATE MESYLATE
     Indication: CARDIAC DISORDER
     Route: 065

REACTIONS (3)
  - Product use in unapproved indication [Recovered/Resolved]
  - Chest pain [Recovered/Resolved]
  - Dyspepsia [Recovered/Resolved]

NARRATIVE: CASE EVENT DATE: 20170801
